FAERS Safety Report 9352567 (Version 1)
Quarter: 2013Q2

REPORT INFORMATION
  Report Type: Spontaneous
  Country: DK (occurrence: DK)
  Receive Date: 20130618
  Receipt Date: 20130618
  Transmission Date: 20140414
  Serious: Yes (Hospitalization, Disabling, Other)
  Sender: FDA-Public Use
  Company Number: DK-009507513-2011SP057230

PATIENT
  Age: 15 Year
  Sex: Female
  Weight: 47 kg

DRUGS (1)
  1. MARVELON [Suspect]
     Indication: DYSMENORRHOEA
     Dosage: STRENGTH: 150+30 MIKROGRAM
     Route: 048
     Dates: start: 201110, end: 20111128

REACTIONS (7)
  - Dyspnoea [Not Recovered/Not Resolved]
  - Deep vein thrombosis [Recovered/Resolved with Sequelae]
  - Eye disorder [Unknown]
  - Syncope [Unknown]
  - Pulmonary embolism [Recovered/Resolved with Sequelae]
  - Oedema peripheral [Not Recovered/Not Resolved]
  - Total lung capacity decreased [Not Recovered/Not Resolved]
